FAERS Safety Report 18985848 (Version 1)
Quarter: 2021Q1

REPORT INFORMATION
  Report Type: Spontaneous
  Country: US (occurrence: US)
  Receive Date: 20210308
  Receipt Date: 20210308
  Transmission Date: 20210420
  Serious: Yes (Death)
  Sender: FDA-Public Use
  Company Number: None

PATIENT
  Age: 56 Year
  Sex: Male

DRUGS (1)
  1. ENBREL [Suspect]
     Active Substance: ETANERCEPT
     Indication: PSORIASIS
     Dosage: TWO TIMES A WEEK 72?96 HOURS APART FOR 3 MONTHS THEN ONCE A WEEK?
     Route: 058
     Dates: start: 202101

REACTIONS (1)
  - Death [None]
